FAERS Safety Report 19433460 (Version 1)
Quarter: 2021Q2

REPORT INFORMATION
  Report Type: Not Available
  Country: US (occurrence: US)
  Receive Date: 20210617
  Receipt Date: 20210617
  Transmission Date: 20210717
  Serious: No
  Sender: FDA-Public Use
  Company Number: US-C B FLEET CO INC-202104-US-001345

PATIENT
  Sex: Female

DRUGS (1)
  1. NIX [Suspect]
     Active Substance: PERMETHRIN
     Indication: LICE INFESTATION
     Dosage: DOSAGE UNKNOWN, USED 6 BOTTLES BETWEEN 2 PEOPLE.
     Route: 061

REACTIONS (3)
  - Skin burning sensation [Not Recovered/Not Resolved]
  - Skin erosion [Not Recovered/Not Resolved]
  - Intentional product misuse [None]
